FAERS Safety Report 4845225-6 (Version None)
Quarter: 2005Q4

REPORT INFORMATION
  Report Type: 
  Country: None (occurrence: None)
  Receive Date: 20051129
  Receipt Date: 20051118
  Transmission Date: 20060501
  Serious: Yes (Hospitalization)
  Sender: FDA-Public Use
  Company Number: 200513956GDS

PATIENT
  Age: 78 Year
  Sex: Male

DRUGS (5)
  1. ASPIRIN [Suspect]
     Dosage: 100 MG, TOTAL DAILY, ORAL
     Route: 048
  2. ACENOCOUMAROL [Suspect]
     Dosage: PRN, ORAL
     Route: 048
     Dates: end: 20050809
  3. FLUVASTATIN [Suspect]
     Dosage: 80 MG, TOTAL DAILY, ORAL
     Route: 048
     Dates: start: 20050701, end: 20050809
  4. FOLIC ACID [Concomitant]
  5. CANDESARTAN [Concomitant]

REACTIONS (5)
  - HAEMATOMA [None]
  - HAEMATURIA [None]
  - HEPATIC TRAUMA [None]
  - JAUNDICE [None]
  - PROTHROMBIN TIME PROLONGED [None]
